FAERS Safety Report 8710798 (Version 3)
Quarter: 2013Q1

REPORT INFORMATION
  Report Type: Spontaneous
  Country: JP (occurrence: None)
  Receive Date: 20120723
  Receipt Date: 20121116
  Transmission Date: 20140127
  Serious: Yes (Other)
  Sender: FDA-Public Use
  Company Number: 2009JP005632

PATIENT
  Age: 53 Year
  Sex: Female
  Weight: 40 kg

DRUGS (20)
  1. TACROLIMUS [Suspect]
     Indication: LUPUS NEPHRITIS
     Route: 048
     Dates: start: 20070927
  2. METHYLPREDNISOLONE [Concomitant]
  3. GASMOTIN (MOSAPRIDE CITRATE) [Concomitant]
  4. ALOSENN (ACHILLEA MILLEFOLIUM, RUBIA TINCTORUM ROOT TINCTURE, SENNA ALEXANDRINA FRUIT, SENNA ALEXANDRINA LEAF, TARAXACUM OFFICINALE) [Concomitant]
  5. GASTER [Concomitant]
  6. EVISTA [Concomitant]
  7. PLETAL [Concomitant]
  8. SAIREI-TO (HERBAL EXTRACT NOS) [Concomitant]
  9. LASIX [Concomitant]
  10. PROCYLIN (BERAPROST SODIUM) [Concomitant]
  11. ALDACTONE [Concomitant]
  12. GOSHAJINKIGAN (HERBAL EXTRACT NOS) [Concomitant]
  13. ETODOLAC [Concomitant]
  14. CLARITHROMYCIN [Concomitant]
  15. PL GRAN. (CAFFEINE, PARACETAMOL, PROMETHAZINE METHYLENE DISALICYLATE, SALICYLAMIDE) [Concomitant]
  16. LOXONIN (LOXOPROFEN SODIUM) [Concomitant]
  17. ALLOPURINOL [Concomitant]
  18. LAMISIL /00992602/ (TERBINAFINE HYDROCHLORIDE) [Concomitant]
  19. PREMINENT (HYDROCHLOROTHIAZIDE, LORSARTAN POTASSIUM) [Concomitant]
  20. HALFDIGOXIN (DIGOXIN) [Concomitant]

REACTIONS (16)
  - Thrombophlebitis [None]
  - Hyperuricaemia [None]
  - Atrophic vulvovaginitis [None]
  - Pharyngitis [None]
  - Haemorrhage subcutaneous [None]
  - Cystitis [None]
  - Haemorrhage [None]
  - Supraventricular tachycardia [None]
  - Platelet count decreased [None]
  - Community acquired infection [None]
  - Onychomycosis [None]
  - Oedema [None]
  - Cardiac disorder [None]
  - Renal impairment [None]
  - Back pain [None]
  - Condition aggravated [None]
